FAERS Safety Report 20412568 (Version 1)
Quarter: 2022Q1

REPORT INFORMATION
  Report Type: Spontaneous
  Country: RU (occurrence: None)
  Receive Date: 20220201
  Receipt Date: 20220201
  Transmission Date: 20220423
  Serious: Yes (Other)
  Sender: FDA-Public Use
  Company Number: RU-Merck Healthcare KGaA-9296061

PATIENT
  Age: 81 Year
  Sex: Female

DRUGS (2)
  1. BAVENCIO [Suspect]
     Active Substance: AVELUMAB
     Indication: Neuroendocrine carcinoma of the skin
     Dosage: 7 INITIAL COURSES WERE CARRIED OUT AT THE INDICATED DOSAGE
     Dates: start: 202107
  2. BAVENCIO [Suspect]
     Active Substance: AVELUMAB
     Dosage: 7 SUBSEQUENT COURSES
     Dates: start: 202107

REACTIONS (2)
  - Tumour haemorrhage [Unknown]
  - Disease progression [Unknown]

NARRATIVE: CASE EVENT DATE: 20220101
